FAERS Safety Report 17593324 (Version 1)
Quarter: 2020Q1

REPORT INFORMATION
  Report Type: Spontaneous
  Country: FR (occurrence: FR)
  Receive Date: 20200327
  Receipt Date: 20200327
  Transmission Date: 20200409
  Serious: Yes (Hospitalization)
  Sender: FDA-Public Use
  Company Number: FR-MYLANLABS-2020M1032128

PATIENT
  Age: 26 Year
  Sex: Female
  Weight: 55 kg

DRUGS (1)
  1. PIPERACILLIN AND TAZOBACTAM [Suspect]
     Active Substance: PIPERACILLIN SODIUM\TAZOBACTAM SODIUM
     Indication: INFECTION
     Dosage: 4 GRAM, TOTAL
     Route: 041
     Dates: start: 20200209, end: 20200209

REACTIONS (4)
  - Multiple organ dysfunction syndrome [Recovering/Resolving]
  - Rash [Recovering/Resolving]
  - Hypotension [Recovering/Resolving]
  - Tachycardia [Recovering/Resolving]

NARRATIVE: CASE EVENT DATE: 20200209
